FAERS Safety Report 7476975-3 (Version None)
Quarter: 2011Q2

REPORT INFORMATION
  Report Type: 
  Country: None (occurrence: None)
  Receive Date: 20110512
  Receipt Date: 20110506
  Transmission Date: 20111010
  Serious: Yes (Death, Other)
  Sender: FDA-Public Use
  Company Number: DE-GENZYME-RENA-1001153

PATIENT
  Sex: Female
  Weight: 60.5 kg

DRUGS (13)
  1. RENVELA [Suspect]
     Indication: HYPERPHOSPHATAEMIA
     Dosage: 2.4 G, QD
     Dates: start: 20100226
  2. COLECALCIFEROL [Concomitant]
     Indication: VITAMIN D
     Dosage: 20000 IU, Q4W
  3. ALFACALCIDOL [Concomitant]
     Indication: VITAMIN D
     Dosage: 0.5 MCG, BID
     Route: 048
  4. RENAGEL [Suspect]
     Indication: HYPERPHOSPHATAEMIA
     Dosage: 4.8 G, QD
     Dates: start: 20081209
  5. ACE INHIBITOR NOS [Concomitant]
     Indication: PRODUCT USED FOR UNKNOWN INDICATION
  6. ALFACALCIDOL [Concomitant]
     Dosage: 0.25 MCG, QD
  7. INSULIN [Concomitant]
     Indication: PRODUCT USED FOR UNKNOWN INDICATION
  8. RENVELA [Suspect]
     Dosage: 0.8 G, QD
     Dates: end: 20110111
  9. EPOGEN [Concomitant]
     Indication: PRODUCT USED FOR UNKNOWN INDICATION
  10. CALCIUM ACETATE [Concomitant]
     Indication: BLOOD PHOSPHORUS ABNORMAL
     Dosage: 2100 MG, QD
  11. BETARECEPTOR BLOCKER [Concomitant]
     Indication: PRODUCT USED FOR UNKNOWN INDICATION
  12. IRON SUBSTITUTION [Concomitant]
     Indication: PRODUCT USED FOR UNKNOWN INDICATION
  13. RENAGEL [Suspect]
     Dosage: 2.4 G, QD
     Dates: end: 20100226

REACTIONS (4)
  - AMPUTATION [None]
  - DEATH [None]
  - ANGIOPLASTY [None]
  - ANGIOGRAM [None]
